FAERS Safety Report 16913761 (Version 4)
Quarter: 2020Q3

REPORT INFORMATION
  Report Type: Report from Study
  Country: JP (occurrence: JP)
  Receive Date: 20191014
  Receipt Date: 20200916
  Transmission Date: 20201102
  Serious: Yes (Hospitalization)
  Sender: FDA-Public Use
  Company Number: JP-JNJFOC-20191015545

PATIENT
  Age: 80 Year
  Sex: Male

DRUGS (22)
  1. REMICADE [Suspect]
     Active Substance: INFLIXIMAB
     Dosage: 2.5 MILLIGRAM, QD2.5 MILLIGRAM, QD
     Route: 042
     Dates: start: 20190412, end: 20190704
  2. METHOTREXATE. [Suspect]
     Active Substance: METHOTREXATE
     Indication: BEHCET^S SYNDROME
     Route: 048
     Dates: start: 20180608
  3. ADALIMUMAB [Concomitant]
     Active Substance: ADALIMUMAB
     Indication: BEHCET^S SYNDROME
  4. EPADEL?S [Concomitant]
     Active Substance: ICOSAPENT ETHYL
     Indication: BEHCET^S SYNDROME
  5. SALAZOPYRIN [Concomitant]
     Active Substance: SULFASALAZINE
     Indication: BEHCET^S SYNDROME
  6. AVOLVE [Concomitant]
     Active Substance: DUTASTERIDE
     Indication: BENIGN PROSTATIC HYPERPLASIA
  7. FERROUS SODIUM CITRATE [Concomitant]
     Active Substance: SODIUM FERROUS CITRATE
     Indication: IRON DEFICIENCY ANAEMIA
  8. TAKECAB [Concomitant]
     Active Substance: VONOPRAZAN FUMARATE
     Indication: BEHCET^S SYNDROME
  9. RESMIT [Concomitant]
     Indication: INSOMNIA
  10. REMICADE [Suspect]
     Active Substance: INFLIXIMAB
     Route: 042
     Dates: start: 20190313, end: 20190313
  11. FOLIC ACID. [Concomitant]
     Active Substance: FOLIC ACID
     Indication: PROPHYLAXIS
  12. REMICADE [Suspect]
     Active Substance: INFLIXIMAB
     Dosage: 2.5 MILLIGRAM, QD
     Route: 042
     Dates: start: 20190313, end: 20190313
  13. ULCERLMIN [Concomitant]
     Active Substance: SUCRALFATE
     Indication: GASTROOESOPHAGEAL REFLUX DISEASE
  14. URIEF [Concomitant]
     Active Substance: SILODOSIN
     Indication: BENIGN PROSTATIC HYPERPLASIA
  15. COLCHICINE. [Concomitant]
     Active Substance: COLCHICINE
     Indication: BEHCET^S SYNDROME
  16. FLAVITAN [Concomitant]
     Active Substance: FLAVIN ADENINE DINUCLEOTIDE
     Indication: BEHCET^S SYNDROME
  17. TAKECAB [Concomitant]
     Active Substance: VONOPRAZAN FUMARATE
     Indication: GASTROOESOPHAGEAL REFLUX DISEASE
  18. MIYA?BM [Concomitant]
     Active Substance: CLOSTRIDIUM BUTYRICUM SPORES STRAIN M-55
     Indication: BEHCET^S SYNDROME
  19. BAKTAR [Concomitant]
     Active Substance: SULFAMETHOXAZOLE\TRIMETHOPRIM
     Indication: PROPHYLAXIS
  20. REMICADE [Suspect]
     Active Substance: INFLIXIMAB
     Indication: BEHCET^S SYNDROME
     Route: 042
     Dates: start: 20170808, end: 20190213
  21. HORIZON [Concomitant]
     Active Substance: DIAZEPAM
     Indication: INSOMNIA
  22. LUPRAC [Concomitant]
     Active Substance: TORSEMIDE
     Indication: OEDEMA

REACTIONS (1)
  - Lung neoplasm malignant [Recovered/Resolved]

NARRATIVE: CASE EVENT DATE: 20190314
